FAERS Safety Report 7450018-X (Version None)
Quarter: 2011Q2

REPORT INFORMATION
  Report Type: 
  Country: None (occurrence: None)
  Receive Date: 20110502
  Receipt Date: 20070709
  Transmission Date: 20111010
  Serious: Yes (Death, Other)
  Sender: FDA-Public Use
  Company Number: US-BAYER-200712162BWH

PATIENT
  Age: 47 Year
  Sex: Female
  Weight: 88.435 kg

DRUGS (13)
  1. VANCOMYCIN [Concomitant]
     Dosage: 1 G, UNK
  2. PLATELETS [Concomitant]
     Dosage: 2 U, UNK
     Dates: start: 20060106
  3. TRASYLOL [Suspect]
     Indication: MITRAL VALVE REPAIR
  4. NOVOLIN R [Concomitant]
     Route: 058
  5. DYAZIDE [Concomitant]
     Dosage: UNK UNK, BID
     Route: 048
     Dates: start: 20051231
  6. MANNITOL [Concomitant]
     Dosage: 12.5 G, UNK
  7. TRASYLOL [Suspect]
     Indication: CORONARY ARTERY BYPASS
     Dosage: 200 MG LOADING DOSE
     Route: 042
     Dates: start: 20060106, end: 20060106
  8. IMDUR [Concomitant]
     Dosage: 60 MG, QD
     Route: 048
  9. LOPRESSOR [Concomitant]
     Dosage: 80 MG, BID
     Route: 048
  10. HEPARIN [Concomitant]
     Dosage: 560
  11. RED BLOOD CELLS, CONCENTRATED [Concomitant]
     Dosage: 4 U, UNK
     Dates: start: 20060106
  12. TRASYLOL [Suspect]
     Indication: PHLEBECTOMY
  13. ARANESP [Concomitant]
     Dosage: 60 MCG EACH WEEK
     Route: 048
     Dates: start: 20051229

REACTIONS (9)
  - ANHEDONIA [None]
  - FEAR [None]
  - UNEVALUABLE EVENT [None]
  - DEPRESSION [None]
  - PAIN [None]
  - RENAL FAILURE [None]
  - INJURY [None]
  - ANXIETY [None]
  - EMOTIONAL DISTRESS [None]
